FAERS Safety Report 9918894 (Version 1)
Quarter: 2014Q1

REPORT INFORMATION
  Report Type: Spontaneous
  Country: US (occurrence: US)
  Receive Date: 20140224
  Receipt Date: 20140224
  Transmission Date: 20141002
  Serious: No
  Sender: FDA-Public Use
  Company Number: US-PFIZER INC-2014051379

PATIENT
  Age: 85 Year
  Sex: Female

DRUGS (5)
  1. SUTENT [Suspect]
     Indication: RENAL CANCER
     Dosage: 25 MG, UNK
     Dates: start: 20140130
  2. ALBUTEROL SULFATE [Concomitant]
     Dosage: UNK
  3. FOSAMAX [Concomitant]
     Dosage: UNK
  4. VITAMIN B12 [Concomitant]
     Dosage: UNK
  5. VITAMIN D3 [Concomitant]
     Dosage: UNK

REACTIONS (1)
  - Skin ulcer [Unknown]
